FAERS Safety Report 6255906-8 (Version None)
Quarter: 2009Q3

REPORT INFORMATION
  Report Type: 
  Country: None (occurrence: None)
  Receive Date: 20090703
  Receipt Date: 20090622
  Transmission Date: 20100115
  Serious: Yes (Death)
  Sender: FDA-Public Use
  Company Number: FR-MYLANLABS-2009S1008531

PATIENT
  Age: 24 Year
  Sex: Male

DRUGS (9)
  1. CYSTAGON [Suspect]
     Indication: CYSTINOSIS
     Route: 048
     Dates: start: 19970101
  2. CYSTAGON [Suspect]
     Route: 048
     Dates: end: 20090204
  3. CYCLOSPORINE [Concomitant]
     Dates: start: 19970101, end: 20090402
  4. MYCOPHENOLATE MOFETIL [Concomitant]
     Dates: start: 19970101, end: 20090402
  5. METHYLPREDNISOLONE [Concomitant]
     Dates: start: 19970101, end: 20090402
  6. ATENOLOL [Concomitant]
     Dates: start: 19940101, end: 20090402
  7. NIFEDIPINE [Concomitant]
     Dates: start: 19940101, end: 20090402
  8. LEVOTHYROXINE SODIUM [Concomitant]
     Dates: start: 20030101, end: 20090402
  9. GLIBENCLAMIDE [Concomitant]
     Dates: start: 20070101, end: 20090402

REACTIONS (1)
  - NON-HODGKIN'S LYMPHOMA [None]
